FAERS Safety Report 15321309 (Version 4)
Quarter: 2018Q4

REPORT INFORMATION
  Report Type: Spontaneous
  Country: US (occurrence: US)
  Receive Date: 20180827
  Receipt Date: 20181207
  Transmission Date: 20190204
  Serious: No
  Sender: FDA-Public Use
  Company Number: US-SA-2018SA237882

PATIENT
  Age: 63 Year
  Sex: Female

DRUGS (2)
  1. PRALUENT [Suspect]
     Active Substance: ALIROCUMAB
     Indication: BLOOD CHOLESTEROL INCREASED
     Dosage: 150 MG, QOW
     Route: 058
     Dates: start: 20180815, end: 20180907
  2. REPATHA [Concomitant]
     Active Substance: EVOLOCUMAB
     Dosage: UNK
     Dates: start: 20160615, end: 201808

REACTIONS (2)
  - Injection site pruritus [Unknown]
  - Injection site discolouration [Unknown]

NARRATIVE: CASE EVENT DATE: 2018
